FAERS Safety Report 26037367 (Version 1)
Quarter: 2025Q4

REPORT INFORMATION
  Report Type: Spontaneous
  Country: US (occurrence: US)
  Receive Date: 20251112
  Receipt Date: 20251112
  Transmission Date: 20260118
  Serious: Yes (Hospitalization, Other)
  Sender: NOVO NORDISK
  Company Number: US-NOVOPROD-1556949

PATIENT
  Age: 10 Year
  Sex: Male
  Weight: 40 kg

DRUGS (1)
  1. SEMAGLUTIDE [Suspect]
     Active Substance: SEMAGLUTIDE
     Indication: Type 1 diabetes mellitus
     Dosage: 0.5 MG
     Route: 058

REACTIONS (12)
  - Anion gap increased [Recovered/Resolved]
  - Feeding intolerance [Recovering/Resolving]
  - Ketonuria [Recovered/Resolved]
  - Acute kidney injury [Recovered/Resolved]
  - Vomiting [Recovering/Resolving]
  - Nausea [Unknown]
  - Drug administered in wrong device [Recovered/Resolved]
  - Accidental exposure to product [Recovered/Resolved]
  - Early satiety [Unknown]
  - Mucosal disorder [Unknown]
  - Decreased appetite [Unknown]
  - Weight decreased [Recovering/Resolving]
